FAERS Safety Report 15291997 (Version 3)
Quarter: 2018Q3

REPORT INFORMATION
  Report Type: Spontaneous
  Country: NL (occurrence: NL)
  Receive Date: 20180818
  Receipt Date: 20180914
  Transmission Date: 20181010
  Serious: Yes (Other)
  Sender: FDA-Public Use
  Company Number: NL-AUROBINDO-AUR-APL-2018-042161

PATIENT
  Age: 79 Year
  Sex: Male

DRUGS (4)
  1. BUDESONIDE W/FORMOTEROL [Suspect]
     Active Substance: BUDESONIDE\FORMOTEROL
     Indication: PRODUCT USED FOR UNKNOWN INDICATION
     Dosage: 6/200 MICROG/DOSE 2 DD 1 INHALATION, BUDESONIDE: 6 ?G; FORMOTEROL: 200 ?G
     Route: 055
  2. FLUTICASONE. [Suspect]
     Active Substance: FLUTICASONE
     Indication: SINUSITIS
     Dosage: 50 MICROG/DOSE, 2 DD 1 SPRAY
     Route: 045
  3. PREDNISONE. [Suspect]
     Active Substance: PREDNISONE
     Indication: CHRONIC OBSTRUCTIVE PULMONARY DISEASE
     Dosage: UNK
     Route: 065
  4. CODEINE [Suspect]
     Active Substance: CODEINE
     Indication: COUGH
     Dosage: 10 MILLIGRAM, ASNECESSARY
     Route: 065

REACTIONS (2)
  - Hypomania [Recovered/Resolved]
  - Drug hypersensitivity [Unknown]
